FAERS Safety Report 12712572 (Version 2)
Quarter: 2016Q3

REPORT INFORMATION
  Report Type: Spontaneous
  Country: GB (occurrence: GB)
  Receive Date: 20160902
  Receipt Date: 20160930
  Transmission Date: 20161109
  Serious: Yes (Other)
  Sender: FDA-Public Use
  Company Number: GB-BIOGEN-2016BI00269418

PATIENT
  Sex: Female

DRUGS (4)
  1. AVONEX [Suspect]
     Active Substance: INTERFERON BETA-1A
     Route: 030
  2. BACLOFEN. [Concomitant]
     Active Substance: BACLOFEN
     Indication: PRODUCT USED FOR UNKNOWN INDICATION
     Route: 065
  3. AVONEX [Suspect]
     Active Substance: INTERFERON BETA-1A
     Indication: MULTIPLE SCLEROSIS
     Route: 030
     Dates: start: 20070509
  4. AVONEX [Suspect]
     Active Substance: INTERFERON BETA-1A
     Route: 030

REACTIONS (12)
  - Peripheral nerve infection [Unknown]
  - Injection site laceration [Unknown]
  - Multiple sclerosis relapse [Recovered/Resolved]
  - Fear [Unknown]
  - Abasia [Unknown]
  - Injection site bruising [Not Recovered/Not Resolved]
  - Crying [Recovered/Resolved]
  - Emotional distress [Unknown]
  - Facial paralysis [Unknown]
  - Needle issue [Unknown]
  - Peripheral nerve palsy [Unknown]
  - Ligament rupture [Not Recovered/Not Resolved]

NARRATIVE: CASE EVENT DATE: 2015
